FAERS Safety Report 4707657-6 (Version None)
Quarter: 2005Q3

REPORT INFORMATION
  Report Type: 
  Country: None (occurrence: None)
  Receive Date: 20050705
  Receipt Date: 20050622
  Transmission Date: 20060218
  Serious: Yes (Hospitalization)
  Sender: FDA-Public Use
  Company Number: MK200506-0324-1

PATIENT
  Age: 63 Year
  Sex: Female

DRUGS (1)
  1. HEXABRIX [Suspect]
     Indication: ANGIOGRAM
     Dosage: SINGLE USE IA
     Route: 013
     Dates: start: 19960101, end: 19960101

REACTIONS (16)
  - ALANINE AMINOTRANSFERASE INCREASED [None]
  - ALDOLASE INCREASED [None]
  - ASPARTATE AMINOTRANSFERASE INCREASED [None]
  - BLOOD ALKALINE PHOSPHATASE INCREASED [None]
  - BLOOD IMMUNOGLOBULIN E INCREASED [None]
  - CHILLS [None]
  - EOSINOPHILIA [None]
  - HYPOTENSION [None]
  - LYMPHOCYTIC INFILTRATION [None]
  - MALAISE [None]
  - MUSCLE ENZYME INCREASED [None]
  - PYREXIA [None]
  - RASH MACULO-PAPULAR [None]
  - RED BLOOD CELL SEDIMENTATION RATE INCREASED [None]
  - SEPSIS [None]
  - SKIN OEDEMA [None]
